FAERS Safety Report 9684292 (Version 2)
Quarter: 2014Q2

REPORT INFORMATION
  Report Type: Spontaneous
  Country: DE (occurrence: DE)
  Receive Date: 20131112
  Receipt Date: 20140612
  Transmission Date: 20141212
  Serious: Yes (Other)
  Sender: FDA-Public Use
  Company Number: DE-B.I. PHARMACEUTICALS,INC./RIDGEFIELD-2013-BI-35991DE

PATIENT
  Age: 63 Year
  Sex: Female
  Weight: 70 kg

DRUGS (4)
  1. MICARDIS [Suspect]
     Indication: HYPERTENSION
     Dosage: 0.5 ANZ
     Route: 065
     Dates: start: 2010
  2. EUTHYROX [Concomitant]
     Route: 065
  3. GRANUFINK FEMINA [Concomitant]
     Route: 065
  4. TERBINAFIN [Concomitant]
     Route: 065

REACTIONS (5)
  - Sepsis [Recovered/Resolved]
  - Vertigo [Not Recovered/Not Resolved]
  - Initial insomnia [Not Recovered/Not Resolved]
  - Fatigue [Not Recovered/Not Resolved]
  - Off label use [Unknown]
